FAERS Safety Report 7684745-6 (Version None)
Quarter: 2011Q3

REPORT INFORMATION
  Report Type: 
  Country: None (occurrence: None)
  Receive Date: 20110816
  Receipt Date: 20110803
  Transmission Date: 20111222
  Serious: Yes (Hospitalization)
  Sender: FDA-Public Use
  Company Number: US-ELI_LILLY_AND_COMPANY-US201108002394

PATIENT
  Age: 87 Year
  Sex: Female

DRUGS (3)
  1. FORTEO [Suspect]
     Indication: OSTEOPOROSIS
     Dosage: 20 UG, QD
     Dates: start: 20110301
  2. MAGNESIUM [Concomitant]
     Dosage: 8 DF, QD
  3. ANTIDEPRESSANTS [Concomitant]
     Indication: DEPRESSION

REACTIONS (10)
  - PERIORBITAL HAEMATOMA [None]
  - ASTHENIA [None]
  - ABNORMAL BEHAVIOUR [None]
  - BLOOD MAGNESIUM DECREASED [None]
  - GAIT DISTURBANCE [None]
  - INFUSION SITE PAIN [None]
  - DRUG DOSE OMISSION [None]
  - CONFUSIONAL STATE [None]
  - BLADDER DISORDER [None]
  - FALL [None]
